FAERS Safety Report 21704757 (Version 2)
Quarter: 2023Q1

REPORT INFORMATION
  Report Type: Spontaneous
  Country: US (occurrence: US)
  Receive Date: 20221209
  Receipt Date: 20230116
  Transmission Date: 20230418
  Serious: No
  Sender: FDA-Public Use
  Company Number: US-BRISTOL-MYERS SQUIBB COMPANY-2022-149953

PATIENT
  Age: 75 Year
  Sex: Female
  Weight: 71.66 kg

DRUGS (1)
  1. POMALYST [Suspect]
     Active Substance: POMALIDOMIDE
     Indication: Plasma cell myeloma
     Route: 048
     Dates: start: 20211007

REACTIONS (5)
  - COVID-19 [Unknown]
  - Somnolence [Unknown]
  - Obsessive-compulsive disorder [Unknown]
  - Tremor [Unknown]
  - Off label use [Unknown]
